FAERS Safety Report 5339679-9 (Version None)
Quarter: 2007Q2

REPORT INFORMATION
  Report Type: 
  Country: None (occurrence: None)
  Receive Date: 20070404
  Receipt Date: 20061114
  Transmission Date: 20071010
  Serious: Yes (Other)
  Sender: FDA-Public Use
  Company Number: 2006118236

PATIENT
  Age: 45 Year
  Sex: Female
  Weight: 86.1834 kg

DRUGS (5)
  1. GEODON [Suspect]
     Indication: BIPOLAR DISORDER
     Dosage: 160 MG
     Dates: start: 20050915
  2. GEODON [Suspect]
     Indication: MANIA
     Dosage: 160 MG
     Dates: start: 20050915
  3. DEPAKOTE - RELEASE (VALPROATE SEMISODIUM) [Concomitant]
  4. TOFRANIL [Concomitant]
  5. TRAZODONE HCL [Concomitant]

REACTIONS (2)
  - HYPOAESTHESIA [None]
  - TREMOR [None]
